FAERS Safety Report 11652583 (Version 1)
Quarter: 2015Q4

REPORT INFORMATION
  Report Type: Spontaneous
  Country: US (occurrence: None)
  Receive Date: 20151021
  Receipt Date: 20151021
  Transmission Date: 20160304
  Serious: Yes (Hospitalization)
  Sender: FDA-Public Use
  Company Number: None

PATIENT
  Age: 55 Year
  Sex: Male
  Weight: 120.6 kg

DRUGS (1)
  1. BEVACIZUMAB (RHUMAB VEGF) [Suspect]
     Active Substance: BEVACIZUMAB
     Dates: end: 20150922

REACTIONS (9)
  - Fall [None]
  - Dysphagia [None]
  - Confusional state [None]
  - Seizure [None]
  - Urinary incontinence [None]
  - Hemianopia [None]
  - Faecal incontinence [None]
  - Gait disturbance [None]
  - Disease progression [None]

NARRATIVE: CASE EVENT DATE: 20151014
